APPROVED DRUG PRODUCT: HYDROMORPHONE HYDROCHLORIDE
Active Ingredient: HYDROMORPHONE HYDROCHLORIDE
Strength: 8MG
Dosage Form/Route: TABLET;ORAL
Application: A076723 | Product #001
Applicant: MPP PHARMA LLC
Approved: Oct 18, 2005 | RLD: No | RS: No | Type: DISCN